FAERS Safety Report 7363830-2 (Version None)
Quarter: 2011Q1

REPORT INFORMATION
  Report Type: 
  Country: None (occurrence: None)
  Receive Date: 20110321
  Receipt Date: 20110311
  Transmission Date: 20110831
  Serious: Yes (Other)
  Sender: FDA-Public Use
  Company Number: CA-ROCHE-752601

PATIENT
  Age: 56 Year
  Sex: Female

DRUGS (2)
  1. XENICAL [Suspect]
     Indication: WEIGHT CONTROL
     Route: 048
     Dates: start: 20100501, end: 20100101
  2. METFORMIN (NON-ROCHE) [Interacting]
     Route: 048

REACTIONS (3)
  - DRUG INTERACTION [None]
  - RENAL FAILURE [None]
  - RENAL IMPAIRMENT [None]
